FAERS Safety Report 15969522 (Version 2)
Quarter: 2019Q1

REPORT INFORMATION
  Report Type: Spontaneous
  Country: US (occurrence: US)
  Receive Date: 20190215
  Receipt Date: 20190215
  Transmission Date: 20190418
  Serious: Yes (Hospitalization, Other)
  Sender: FDA-Public Use
  Company Number: PHEH2019US006856

PATIENT
  Sex: Female

DRUGS (1)
  1. TASIGNA [Suspect]
     Active Substance: NILOTINIB
     Indication: CHRONIC MYELOID LEUKAEMIA
     Dosage: 1 DF, BID
     Route: 048
     Dates: start: 20150313, end: 201803

REACTIONS (20)
  - Bradycardia [Unknown]
  - Abdominal pain upper [Unknown]
  - Chest pain [Unknown]
  - Fatigue [Unknown]
  - Restless legs syndrome [Unknown]
  - Dizziness [Unknown]
  - Urinary tract infection [Unknown]
  - Diarrhoea [Unknown]
  - Anxiety [Unknown]
  - Depression [Unknown]
  - Abdominal distension [Unknown]
  - Atrial fibrillation [Unknown]
  - Gastrooesophageal reflux disease [Unknown]
  - Alopecia [Unknown]
  - Constipation [Unknown]
  - Pleural effusion [Unknown]
  - Dysphagia [Unknown]
  - Nausea [Unknown]
  - Dehydration [Unknown]
  - Pyrexia [Unknown]
